FAERS Safety Report 5837595-7 (Version None)
Quarter: 2008Q3

REPORT INFORMATION
  Report Type: 
  Country: None (occurrence: None)
  Receive Date: 20080731
  Receipt Date: 20080609
  Transmission Date: 20090109
  Serious: No
  Sender: FDA-Public Use
  Company Number: US200806002196

PATIENT
  Age: 71 Year
  Sex: Male
  Weight: 89.3 kg

DRUGS (9)
  1. BYETTA [Suspect]
     Indication: TYPE 2 DIABETES MELLITUS
     Dosage: 5 UG, 2/D, SUBCUTANEOUS
     Route: 058
     Dates: start: 20080501
  2. EXENATIDE 5MCG PEN, DISPOSABLE DEVICE [Concomitant]
  3. METFORMIN HCL [Concomitant]
  4. PROCARDIA [Concomitant]
  5. FUROSEMIDE (FUROSEMIDE) [Concomitant]
  6. ATENOLOL [Concomitant]
  7. LISINOPRIL HYDROCHLORTHIAZIDE                (HYDROCHLOROTHIAZIDE, LIS [Concomitant]
  8. LOVASTATIN [Concomitant]
  9. DOXAZOSIN (DOXAZOSIN) [Concomitant]

REACTIONS (4)
  - BLOOD PRESSURE DECREASED [None]
  - DYSGEUSIA [None]
  - NAUSEA [None]
  - WEIGHT DECREASED [None]
